FAERS Safety Report 10151158 (Version 1)
Quarter: 2014Q2

REPORT INFORMATION
  Report Type: Spontaneous
  Country: AE (occurrence: AE)
  Receive Date: 20140502
  Receipt Date: 20140502
  Transmission Date: 20141212
  Serious: Yes (Hospitalization)
  Sender: FDA-Public Use
  Company Number: PHHY2014AE051663

PATIENT
  Age: 35 Year
  Sex: Female
  Weight: 82.6 kg

DRUGS (2)
  1. EXFORGE HCT [Suspect]
     Indication: HYPERTENSION
     Dosage: 1 DF, (160 VALS, 05 AMLO AND 12.5 HCTZ), DAILY
     Route: 048
     Dates: start: 20130908, end: 20140127
  2. PRIMOLUT//NORETHISTERONE [Concomitant]
     Dosage: UNK UKN, UNK

REACTIONS (7)
  - Subchorionic haematoma [Unknown]
  - Vaginal haemorrhage [Recovered/Resolved]
  - Abdominal pain [Unknown]
  - Polycystic ovaries [Unknown]
  - Abortion threatened [Unknown]
  - Essential hypertension [Unknown]
  - Maternal exposure during pregnancy [Unknown]
